FAERS Safety Report 9012227 (Version 2)
Quarter: 2013Q1

REPORT INFORMATION
  Report Type: Spontaneous
  Country: US (occurrence: US)
  Receive Date: 20130114
  Receipt Date: 20130128
  Transmission Date: 20140127
  Serious: Yes (Hospitalization)
  Sender: FDA-Public Use
  Company Number: US-ELI_LILLY_AND_COMPANY-US201301002021

PATIENT
  Sex: Female

DRUGS (3)
  1. ZYPREXA [Suspect]
     Dosage: 22.5 MG, UNK
  2. ZYPREXA [Suspect]
     Dosage: 5 MG, UNK
  3. ZYPREXA [Suspect]
     Dosage: 10 MG, UNK

REACTIONS (7)
  - Bipolar disorder [Unknown]
  - Transient ischaemic attack [Unknown]
  - Hypertension [Unknown]
  - Muscular weakness [Unknown]
  - Memory impairment [Unknown]
  - Unevaluable event [Unknown]
  - Overdose [Unknown]
